FAERS Safety Report 8433892-X (Version None)
Quarter: 2012Q2

REPORT INFORMATION
  Report Type: 
  Country: None (occurrence: None)
  Receive Date: 20120613
  Receipt Date: 20120605
  Transmission Date: 20120825
  Serious: Yes (Hospitalization, Other)
  Sender: FDA-Public Use
  Company Number: US-US-EMD SERONO, INC.-7138134

PATIENT
  Sex: Female

DRUGS (3)
  1. THYROID PILLS [Concomitant]
     Indication: THYROID DISORDER
  2. FLUID PILLS [Concomitant]
     Indication: PRODUCT USED FOR UNKNOWN INDICATION
  3. REBIF [Suspect]
     Indication: MULTIPLE SCLEROSIS
     Route: 058
     Dates: start: 20081022

REACTIONS (5)
  - WEIGHT INCREASED [None]
  - INTERVERTEBRAL DISC PROTRUSION [None]
  - PERINEURIAL CYST [None]
  - THYROID DISORDER [None]
  - FALL [None]
